FAERS Safety Report 6049047-2 (Version None)
Quarter: 2009Q1

REPORT INFORMATION
  Report Type: 
  Country: None (occurrence: None)
  Receive Date: 20090123
  Receipt Date: 20090116
  Transmission Date: 20090719
  Serious: Yes (Life-Threatening)
  Sender: FDA-Public Use
  Company Number: FR-ROCHE-609831

PATIENT
  Sex: Male

DRUGS (1)
  1. VALIUM [Suspect]
     Indication: DRUG USE FOR UNKNOWN INDICATION
     Dosage: DRUG NAME: VALIUM 10 ROCHE.
     Route: 048
     Dates: start: 20081113, end: 20081115

REACTIONS (2)
  - COMA ACIDOTIC [None]
  - HYPERCAPNIA [None]
